FAERS Safety Report 18847684 (Version 2)
Quarter: 2021Q1

REPORT INFORMATION
  Report Type: Spontaneous
  Country: US (occurrence: US)
  Receive Date: 20210204
  Receipt Date: 20210224
  Transmission Date: 20210419
  Serious: Yes (Hospitalization, Other)
  Sender: FDA-Public Use
  Company Number: US-B.I. PHARMACEUTICALS,INC./RIDGEFIELD-2021-BI-079779

PATIENT
  Age: 73 Year
  Sex: Female

DRUGS (1)
  1. ATROVENT [Suspect]
     Active Substance: IPRATROPIUM BROMIDE
     Indication: PNEUMONIA
     Dosage: 2 PUFFS TWICE DAILY AND AS NEEDED
     Dates: start: 20201220

REACTIONS (5)
  - Pulmonary embolism [Recovering/Resolving]
  - Device malfunction [Unknown]
  - Off label use [Unknown]
  - Product quality issue [Unknown]
  - Pneumonia [Recovering/Resolving]

NARRATIVE: CASE EVENT DATE: 20201220
